FAERS Safety Report 16759271 (Version 2)
Quarter: 2019Q3

REPORT INFORMATION
  Report Type: Spontaneous
  Country: US (occurrence: US)
  Receive Date: 20190830
  Receipt Date: 20190917
  Transmission Date: 20191005
  Serious: No
  Sender: FDA-Public Use
  Company Number: US-JNJFOC-20190830524

PATIENT
  Age: 56 Year
  Sex: Female
  Weight: 59.02 kg

DRUGS (8)
  1. COSARTAN                           /01121602/ [Concomitant]
  2. DURAGESIC [Suspect]
     Active Substance: FENTANYL
     Route: 062
  3. ACIPHEX [Concomitant]
     Active Substance: RABEPRAZOLE SODIUM
  4. MOTRIN [Concomitant]
     Active Substance: IBUPROFEN
  5. FLONASE [Concomitant]
     Active Substance: FLUTICASONE PROPIONATE
  6. DURAGESIC [Suspect]
     Active Substance: FENTANYL
     Indication: PAIN
     Route: 062
     Dates: start: 20190810
  7. VALIUM [Concomitant]
     Active Substance: DIAZEPAM
  8. OXYCODONE [Concomitant]
     Active Substance: OXYCODONE

REACTIONS (6)
  - Pain [Unknown]
  - Application site warmth [Unknown]
  - Product dose omission [Unknown]
  - Back pain [Unknown]
  - Hyperhidrosis [Unknown]
  - Product adhesion issue [Unknown]

NARRATIVE: CASE EVENT DATE: 20190810
